FAERS Safety Report 5830185-1 (Version None)
Quarter: 2008Q3

REPORT INFORMATION
  Report Type: 
  Country: None (occurrence: None)
  Receive Date: 20080801
  Receipt Date: 20080721
  Transmission Date: 20090109
  Serious: Yes (Hospitalization)
  Sender: FDA-Public Use
  Company Number: US-JNJFOC-20080403232

PATIENT
  Sex: Male
  Weight: 40.5 kg

DRUGS (8)
  1. REMICADE [Suspect]
     Route: 042
  2. REMICADE [Suspect]
     Route: 042
  3. REMICADE [Suspect]
     Indication: CROHN'S DISEASE
     Dosage: INFUSIONS EVERY 4-5 WEEKS
     Route: 042
  4. PREDNISONE [Concomitant]
     Indication: CROHN'S DISEASE
  5. FLAGYL [Concomitant]
     Indication: DIARRHOEA
  6. PREVACID [Concomitant]
     Indication: GASTROINTESTINAL DISORDER
  7. ASACOL [Concomitant]
     Indication: COLITIS
  8. CORTIFOAM [Concomitant]
     Indication: RECTAL HAEMORRHAGE

REACTIONS (4)
  - ANAEMIA [None]
  - HAEMATOCHEZIA [None]
  - INFLUENZA [None]
  - RESTLESS LEGS SYNDROME [None]
